FAERS Safety Report 24362035 (Version 1)
Quarter: 2024Q3

REPORT INFORMATION
  Report Type: Spontaneous
  Country: US (occurrence: None)
  Receive Date: 20240924
  Receipt Date: 20240924
  Transmission Date: 20241017
  Serious: No
  Sender: Public
  Company Number: None

PATIENT
  Age: 45 Year
  Sex: Female
  Weight: 65.7 kg

DRUGS (7)
  1. PERMETHRIN [Suspect]
     Active Substance: PERMETHRIN
     Indication: Acarodermatitis
     Dosage: 1 TUBE TWO WEEKS APART TOPICAL
     Route: 061
     Dates: start: 20240909, end: 20240921
  2. BACLOFEN [Concomitant]
  3. norethindrone [Concomitant]
  4. MAGNESIUM [Concomitant]
  5. IBUPROFEN [Concomitant]
  6. DIETARY SUPPLEMENT\HERBALS\MILK THISTLE [Concomitant]
     Active Substance: MILK THISTLE
  7. FISH OIL [Concomitant]
     Active Substance: FISH OIL

REACTIONS (2)
  - Rash pruritic [None]
  - Urticaria [None]

NARRATIVE: CASE EVENT DATE: 20240922
